FAERS Safety Report 25571496 (Version 1)
Quarter: 2025Q3

REPORT INFORMATION
  Report Type: Spontaneous
  Country: US (occurrence: US)
  Receive Date: 20250717
  Receipt Date: 20250717
  Transmission Date: 20251021
  Serious: Yes (Other)
  Sender: MYLAN
  Company Number: US-MYLANLABS-2025M1059406

PATIENT
  Age: 70 Year
  Sex: Female

DRUGS (12)
  1. LENALIDOMIDE [Suspect]
     Active Substance: LENALIDOMIDE
     Indication: Plasma cell myeloma
  2. LENALIDOMIDE [Suspect]
     Active Substance: LENALIDOMIDE
     Route: 065
  3. LENALIDOMIDE [Suspect]
     Active Substance: LENALIDOMIDE
     Route: 065
  4. LENALIDOMIDE [Suspect]
     Active Substance: LENALIDOMIDE
  5. DEXAMETHASONE [Suspect]
     Active Substance: DEXAMETHASONE
     Indication: Plasma cell myeloma
  6. DEXAMETHASONE [Suspect]
     Active Substance: DEXAMETHASONE
     Route: 065
  7. DEXAMETHASONE [Suspect]
     Active Substance: DEXAMETHASONE
     Route: 065
  8. DEXAMETHASONE [Suspect]
     Active Substance: DEXAMETHASONE
  9. TOLODODEKIN ALFA [Suspect]
     Active Substance: TOLODODEKIN ALFA
     Indication: Plasma cell myeloma
     Dosage: UNK, MONTHLY
  10. TOLODODEKIN ALFA [Suspect]
     Active Substance: TOLODODEKIN ALFA
     Dosage: UNK, MONTHLY
     Route: 065
  11. TOLODODEKIN ALFA [Suspect]
     Active Substance: TOLODODEKIN ALFA
     Dosage: UNK, MONTHLY
     Route: 065
  12. TOLODODEKIN ALFA [Suspect]
     Active Substance: TOLODODEKIN ALFA
     Dosage: UNK, MONTHLY

REACTIONS (2)
  - Myelosuppression [Not Recovered/Not Resolved]
  - Drug ineffective [Unknown]
